FAERS Safety Report 7519516-4 (Version None)
Quarter: 2011Q2

REPORT INFORMATION
  Report Type: 
  Country: None (occurrence: None)
  Receive Date: 20110602
  Receipt Date: 20110525
  Transmission Date: 20111010
  Serious: Yes (Hospitalization, Disabling)
  Sender: FDA-Public Use
  Company Number: FR-BRISTOL-MYERS SQUIBB COMPANY-15792591

PATIENT
  Age: 65 Year
  Sex: Female

DRUGS (9)
  1. EPIRUBICIN [Suspect]
     Indication: CHEMOTHERAPY
  2. CYMBALTA [Suspect]
     Indication: MAJOR DEPRESSION
  3. ESIDRIX [Suspect]
     Indication: HYPERTENSION
     Route: 048
  4. DIAMICRON [Suspect]
     Indication: TYPE 2 DIABETES MELLITUS
     Route: 048
  5. TAXOTERE [Suspect]
     Indication: BREAST CANCER
     Dosage: FIRST COURSE 17DEC2010
     Dates: start: 20110107, end: 20110107
  6. ENALAPRIL MALEATE [Suspect]
     Indication: HYPERTENSION
     Route: 048
  7. HERCEPTIN [Suspect]
     Indication: BREAST CANCER
     Dosage: FIRST COURSE 17DEC2010
     Route: 042
     Dates: start: 20110107, end: 20110107
  8. GLUCOPHAGE [Suspect]
     Indication: TYPE 2 DIABETES MELLITUS
     Route: 048
  9. CYCLOPHOSPHAMIDE [Suspect]
     Indication: CHEMOTHERAPY

REACTIONS (3)
  - PALMAR-PLANTAR ERYTHRODYSAESTHESIA SYNDROME [None]
  - OEDEMA [None]
  - UROSEPSIS [None]
